FAERS Safety Report 9358219 (Version 1)
Quarter: 2013Q2

REPORT INFORMATION
  Report Type: Spontaneous
  Country: US (occurrence: None)
  Receive Date: 20130619
  Receipt Date: 20130619
  Transmission Date: 20140414
  Serious: Yes (Other)
  Sender: FDA-Public Use
  Company Number: None

PATIENT
  Age: 62 Year
  Sex: Female
  Weight: 75.75 kg

DRUGS (1)
  1. LIVALO [Suspect]
     Indication: BLOOD CHOLESTEROL INCREASED
     Dosage: 1 PER DAY
     Route: 048
     Dates: start: 20130422, end: 20130511

REACTIONS (4)
  - Musculoskeletal pain [None]
  - Muscle spasms [None]
  - Impaired work ability [None]
  - Sleep disorder [None]
